FAERS Safety Report 7928207-7 (Version None)
Quarter: 2011Q4

REPORT INFORMATION
  Report Type: 
  Country: None (occurrence: None)
  Receive Date: 20111118
  Receipt Date: 20111102
  Transmission Date: 20120403
  Serious: No
  Sender: FDA-Public Use
  Company Number: US-JNJFOC-20111101536

PATIENT
  Sex: Female

DRUGS (3)
  1. CHOLESTEROL PILL [Concomitant]
     Indication: BLOOD CHOLESTEROL
     Route: 048
     Dates: start: 20081001
  2. INVEGA [Suspect]
     Indication: SCHIZOAFFECTIVE DISORDER
     Route: 048
     Dates: start: 20081001
  3. FLUOXETINE [Concomitant]
     Indication: DEPRESSION
     Route: 048
     Dates: start: 20081001

REACTIONS (2)
  - PANIC ATTACK [None]
  - PREGNANCY [None]
